FAERS Safety Report 4502883-3 (Version None)
Quarter: 2004Q4

REPORT INFORMATION
  Report Type: 
  Country: None (occurrence: None)
  Receive Date: 20041116
  Receipt Date: 20041116
  Transmission Date: 20050328
  Serious: Yes (Life-Threatening, Hospitalization)
  Sender: FDA-Public Use
  Company Number: None

PATIENT
  Age: 71 Year
  Sex: Male
  Weight: 108.9 kg

DRUGS (13)
  1. ZANTAC [Suspect]
     Indication: ANAPHYLACTIC REACTION
     Dosage: PRIOR TO ADMISSION
  2. ZANTAC [Suspect]
     Indication: GASTROINTESTINAL DISORDER
     Dosage: PRIOR TO ADMISSION
  3. PROPOXYPHENE N 100/APAP [Concomitant]
  4. METFORMIN HCL [Concomitant]
  5. ENALAPRIL MALEATE [Concomitant]
  6. SILDENAFIL CITRATE [Concomitant]
  7. TERAZOSIN HCL [Concomitant]
  8. DILTIAZEM (INWOOD) [Concomitant]
  9. SIMVASTATIN [Concomitant]
  10. LORATADINE [Concomitant]
  11. BISACODYL [Concomitant]
  12. FLUNISOLIDE [Concomitant]
  13. HYDROCORTISONE [Concomitant]

REACTIONS (1)
  - ANAPHYLACTIC REACTION [None]
